FAERS Safety Report 19289011 (Version 2)
Quarter: 2021Q2

REPORT INFORMATION
  Report Type: Report from Study
  Country: CA (occurrence: CA)
  Receive Date: 20210521
  Receipt Date: 20210615
  Transmission Date: 20210717
  Serious: Yes (Other)
  Sender: FDA-Public Use
  Company Number: CA-BIOGEN-2021BI01004720

PATIENT
  Age: 58 Year
  Sex: Female

DRUGS (2)
  1. TYSABRI [Suspect]
     Active Substance: NATALIZUMAB
     Indication: MULTIPLE SCLEROSIS
     Dosage: INFUSED FOR OVER 1 HOUR
     Route: 042
     Dates: start: 20210420
  2. ASTRAZENECA COVID?19 VACCINE [Suspect]
     Active Substance: AZD-1222
     Indication: COVID-19 PROPHYLAXIS
     Route: 065

REACTIONS (26)
  - Muscle twitching [Unknown]
  - Haemorrhage [Unknown]
  - Hypoaesthesia oral [Unknown]
  - Contusion [Unknown]
  - Chills [Recovered/Resolved]
  - Choking [Not Recovered/Not Resolved]
  - Abdominal rigidity [Unknown]
  - Bone contusion [Unknown]
  - Mass [Unknown]
  - Muscle spasms [Unknown]
  - Oropharyngeal pain [Unknown]
  - Spinal column injury [Unknown]
  - Obstructive airways disorder [Unknown]
  - Intestinal obstruction [Unknown]
  - Diarrhoea [Unknown]
  - Hypoaesthesia [Unknown]
  - Speech disorder [Unknown]
  - Pharyngeal hypoaesthesia [Unknown]
  - Gastrointestinal disorder [Unknown]
  - Fatigue [Unknown]
  - Swollen tongue [Unknown]
  - Abdominal pain [Unknown]
  - Tongue movement disturbance [Not Recovered/Not Resolved]
  - Fall [Recovered/Resolved]
  - Pain [Unknown]
  - Tremor [Unknown]

NARRATIVE: CASE EVENT DATE: 202104
